FAERS Safety Report 24156550 (Version 1)
Quarter: 2024Q3

REPORT INFORMATION
  Report Type: Report from Study
  Country: IT (occurrence: IT)
  Receive Date: 20240731
  Receipt Date: 20240731
  Transmission Date: 20241017
  Serious: Yes (Hospitalization)
  Sender: BAUSCH AND LOMB
  Company Number: IT-SA-SAC20230127000273

PATIENT
  Age: 74 Year
  Sex: Male
  Weight: 73 kg

DRUGS (66)
  1. DEXAMETHASONE [Suspect]
     Active Substance: DEXAMETHASONE
     Indication: Plasma cell myeloma
     Dosage: 120 MG (DAYS 1, 8, 15, 22)
     Route: 065
     Dates: start: 20230330, end: 20230420
  2. DEXAMETHASONE [Suspect]
     Active Substance: DEXAMETHASONE
     Dosage: 120 MG (DAYS 1, 8, 15, 22)
     Route: 065
     Dates: start: 20230426, end: 20230517
  3. DEXAMETHASONE [Suspect]
     Active Substance: DEXAMETHASONE
     Indication: Plasma cell myeloma
     Dosage: 20 MG (TOTAL DOSE)
     Route: 065
     Dates: start: 20221229, end: 20230105
  4. DEXAMETHASONE [Suspect]
     Active Substance: DEXAMETHASONE
     Dosage: 20 MG, BIW
     Route: 065
     Dates: start: 20230706, end: 20230720
  5. DEXAMETHASONE [Suspect]
     Active Substance: DEXAMETHASONE
     Dosage: 20 MG (DAYS 1,2,8,9, 15, 16, 22, 23)
     Route: 065
     Dates: start: 20230119, end: 20230210
  6. DEXAMETHASONE [Suspect]
     Active Substance: DEXAMETHASONE
     Dosage: 20 MG, DAYS 1, 2, 8, 9, 15, 16, 22, 23
     Route: 065
     Dates: start: 20220713, end: 20220901
  7. DEXAMETHASONE [Suspect]
     Active Substance: DEXAMETHASONE
     Dosage: 40 MG, BIW
     Route: 065
     Dates: start: 20230928, end: 20231012
  8. DEXAMETHASONE [Suspect]
     Active Substance: DEXAMETHASONE
     Dosage: 20 MG (DAYS 1, 8, 15, 22)
     Route: 065
     Dates: start: 20230525, end: 20230615
  9. DEXAMETHASONE [Suspect]
     Active Substance: DEXAMETHASONE
     Dosage: 20 MG (DAYS 1, 2, 8, 9, 15, 16, 22, 23)
     Route: 065
     Dates: start: 20221110, end: 20221125
  10. DEXAMETHASONE [Suspect]
     Active Substance: DEXAMETHASONE
     Dosage: 20 MG, BIW
     Route: 065
     Dates: start: 20240307, end: 20240321
  11. DEXAMETHASONE [Suspect]
     Active Substance: DEXAMETHASONE
     Dosage: 20 MG, BIW
     Route: 065
     Dates: start: 20240503
  12. DEXAMETHASONE [Suspect]
     Active Substance: DEXAMETHASONE
     Dosage: 20 MG (DAYS 1, 2, 8, 9, 15, 16,22, 23)
     Route: 065
     Dates: start: 20220907, end: 20220922
  13. DEXAMETHASONE [Suspect]
     Active Substance: DEXAMETHASONE
     Dosage: 40 MG (DAYS 1, 8, 15, 22)
     Route: 065
     Dates: start: 20230302, end: 20230323
  14. DEXAMETHASONE [Suspect]
     Active Substance: DEXAMETHASONE
     Dosage: 20 MG, BIW
     Route: 065
     Dates: start: 20230803, end: 20230817
  15. DEXAMETHASONE [Suspect]
     Active Substance: DEXAMETHASONE
     Dosage: 20 MG, BIW
     Route: 065
     Dates: start: 20240209, end: 20240222
  16. DEXAMETHASONE [Suspect]
     Active Substance: DEXAMETHASONE
     Dosage: 20 MG (DAYS 1, 2, 8, 9, 15, 16, 22, 23)
     Route: 065
     Dates: start: 20221013, end: 20221028
  17. DEXAMETHASONE [Suspect]
     Active Substance: DEXAMETHASONE
     Dosage: 40 MG, BIW
     Route: 065
     Dates: start: 20231123, end: 20231206
  18. DEXAMETHASONE [Suspect]
     Active Substance: DEXAMETHASONE
     Dosage: 20 MG, BIW
     Route: 065
     Dates: start: 20230831, end: 20230914
  19. DEXAMETHASONE [Suspect]
     Active Substance: DEXAMETHASONE
     Dosage: 20 MG, BIW
     Route: 065
     Dates: start: 20230621, end: 20230705
  20. DEXAMETHASONE [Suspect]
     Active Substance: DEXAMETHASONE
     Dosage: 40 MG, BIW
     Route: 065
     Dates: start: 20231026, end: 20231109
  21. DEXAMETHASONE [Suspect]
     Active Substance: DEXAMETHASONE
     Dosage: 80 MG, BIW
     Route: 065
     Dates: start: 20240112, end: 20240126
  22. DEXAMETHASONE [Suspect]
     Active Substance: DEXAMETHASONE
     Dosage: 20 MG, BIW
     Route: 065
     Dates: start: 20240404, end: 20240418
  23. CARFILZOMIB [Suspect]
     Active Substance: CARFILZOMIB
     Indication: Plasma cell myeloma
     Dosage: 36 MG, DAYS 1, 2
     Route: 065
     Dates: start: 20220713, end: 20220714
  24. CARFILZOMIB [Suspect]
     Active Substance: CARFILZOMIB
     Dosage: 102 MG
     Route: 065
     Dates: start: 20221013, end: 20221028
  25. CARFILZOMIB [Suspect]
     Active Substance: CARFILZOMIB
     Dosage: 102 MG, DAYS 1,2,8,9,15,16
     Route: 065
     Dates: start: 20221229, end: 20230105
  26. CARFILZOMIB [Suspect]
     Active Substance: CARFILZOMIB
     Dosage: 102MG (DAYS 1, 2, 8, 9, 15, 16)
     Route: 065
     Dates: start: 20221110, end: 20221125
  27. CARFILZOMIB [Suspect]
     Active Substance: CARFILZOMIB
     Dosage: 102 MG, DAYS 8, 9, 15, 16
     Route: 065
     Dates: start: 20220720, end: 20220825
  28. CARFILZOMIB [Suspect]
     Active Substance: CARFILZOMIB
     Dosage: 102 UNK
     Route: 065
     Dates: start: 20220907, end: 20220922
  29. ISATUXIMAB [Suspect]
     Active Substance: ISATUXIMAB
     Indication: Plasma cell myeloma
     Dosage: 710 MG, QW
     Route: 065
     Dates: start: 20220713, end: 20220831
  30. ISATUXIMAB [Suspect]
     Active Substance: ISATUXIMAB
     Dosage: 710 MG, QW
     Route: 065
     Dates: start: 20230119, end: 20230202
  31. ISATUXIMAB [Suspect]
     Active Substance: ISATUXIMAB
     Dosage: 710 MG, BIW
     Route: 065
     Dates: start: 20240112, end: 20240126
  32. ISATUXIMAB [Suspect]
     Active Substance: ISATUXIMAB
     Dosage: 710 MG, BIW
     Route: 065
     Dates: start: 20230330, end: 20230413
  33. ISATUXIMAB [Suspect]
     Active Substance: ISATUXIMAB
     Dosage: 710 MG, BIW
     Route: 065
     Dates: start: 20230525
  34. ISATUXIMAB [Suspect]
     Active Substance: ISATUXIMAB
     Dosage: 710 MG, BIW
     Route: 065
     Dates: start: 20240404, end: 20240418
  35. ISATUXIMAB [Suspect]
     Active Substance: ISATUXIMAB
     Dosage: 710 MG/KG, BIW
     Route: 065
     Dates: start: 20220907, end: 20220921
  36. ISATUXIMAB [Suspect]
     Active Substance: ISATUXIMAB
     Dosage: 710 MG, BIW
     Route: 065
     Dates: start: 20230706, end: 20230720
  37. ISATUXIMAB [Suspect]
     Active Substance: ISATUXIMAB
     Dosage: 710 MG, BIW
     Route: 065
     Dates: start: 20231026, end: 20231109
  38. ISATUXIMAB [Suspect]
     Active Substance: ISATUXIMAB
     Dosage: 710 MG, BIW
     Route: 065
     Dates: start: 20230928, end: 20231012
  39. ISATUXIMAB [Suspect]
     Active Substance: ISATUXIMAB
     Dosage: 710 MG, BIW
     Route: 065
     Dates: start: 20231123, end: 20231206
  40. ISATUXIMAB [Suspect]
     Active Substance: ISATUXIMAB
     Dosage: 710 MG, BIW
     Route: 065
     Dates: start: 20221110, end: 20221124
  41. ISATUXIMAB [Suspect]
     Active Substance: ISATUXIMAB
     Dosage: 710 MG, BIW
     Route: 065
     Dates: start: 20221229, end: 20221229
  42. ISATUXIMAB [Suspect]
     Active Substance: ISATUXIMAB
     Dosage: 710 MG, BIW
     Route: 065
     Dates: start: 20230426, end: 20230511
  43. ISATUXIMAB [Suspect]
     Active Substance: ISATUXIMAB
     Dosage: 710 MG, QW
     Route: 065
     Dates: start: 20230302, end: 20230316
  44. ISATUXIMAB [Suspect]
     Active Substance: ISATUXIMAB
     Dosage: 710 MG/KG, BIW
     Route: 065
     Dates: start: 20221013, end: 20221027
  45. ISATUXIMAB [Suspect]
     Active Substance: ISATUXIMAB
     Dosage: 710 MG, BIW
     Route: 065
     Dates: start: 20240307, end: 20240321
  46. ISATUXIMAB [Suspect]
     Active Substance: ISATUXIMAB
     Dosage: 710 MG, BIW
     Route: 065
     Dates: start: 20230621, end: 20230705
  47. ISATUXIMAB [Suspect]
     Active Substance: ISATUXIMAB
     Dosage: 710 MG, BIW
     Route: 065
     Dates: start: 20230803, end: 20230817
  48. ISATUXIMAB [Suspect]
     Active Substance: ISATUXIMAB
     Dosage: 710 MG, BIW
     Route: 065
     Dates: start: 20230831, end: 20230914
  49. ISATUXIMAB [Suspect]
     Active Substance: ISATUXIMAB
     Dosage: 710 MG, BIW
     Route: 065
     Dates: start: 20240503
  50. ISATUXIMAB [Suspect]
     Active Substance: ISATUXIMAB
     Dosage: 710 MG, BIW
     Route: 065
     Dates: start: 20240209, end: 20240222
  51. PREGABALIN [Concomitant]
     Active Substance: PREGABALIN
     Indication: Product used for unknown indication
     Dates: start: 20210615
  52. FLUTICASONE FUROATE\UMECLIDINIUM BROMIDE\VILANTEROL TRIFENATATE [Concomitant]
     Active Substance: FLUTICASONE FUROATE\UMECLIDINIUM BROMIDE\VILANTEROL TRIFENATATE
     Indication: Chronic obstructive pulmonary disease
     Dates: start: 202212
  53. OMEPRAZOLE [Concomitant]
     Active Substance: OMEPRAZOLE
     Indication: Product used for unknown indication
     Dates: start: 20210615
  54. ACYCLOVIR [Concomitant]
     Active Substance: ACYCLOVIR
     Indication: Viral infection
     Dates: start: 202109
  55. VILANTEROL [Concomitant]
     Active Substance: VILANTEROL
     Indication: Product used for unknown indication
     Dates: start: 202212
  56. ALLOPURINOL [Concomitant]
     Active Substance: ALLOPURINOL
     Indication: Hyperuricaemia
     Dates: start: 202109
  57. RAMIPRIL [Concomitant]
     Active Substance: RAMIPRIL
     Indication: Product used for unknown indication
     Dates: start: 20210615
  58. ACETAMINOPHEN [Concomitant]
     Active Substance: ACETAMINOPHEN
     Indication: Product used for unknown indication
     Dosage: UNK UNK, QCY
     Dates: start: 20220713
  59. UMECLIDINIUM [Concomitant]
     Active Substance: UMECLIDINIUM
     Indication: Product used for unknown indication
     Dates: start: 202212
  60. BISOPROLOL [Concomitant]
     Active Substance: BISOPROLOL\BISOPROLOL FUMARATE
     Indication: Product used for unknown indication
     Dates: start: 20210615
  61. LANSOPRAZOLE [Concomitant]
     Active Substance: LANSOPRAZOLE
     Indication: Premedication
     Dosage: UNK UNK, QCY
     Dates: start: 20220713
  62. SULFAMETHOXAZOLE AND TRIMETHOPRIM [Concomitant]
     Active Substance: SULFAMETHOXAZOLE\TRIMETHOPRIM
     Indication: Prophylaxis
     Dates: start: 202109
  63. ASPIRIN [Concomitant]
     Active Substance: ASPIRIN
     Indication: Product used for unknown indication
     Dates: start: 20220309
  64. ASPIRIN [Concomitant]
     Active Substance: ASPIRIN
     Indication: Product used for unknown indication
     Dates: start: 20210615
  65. AMLODIPINE BESYLATE [Concomitant]
     Active Substance: AMLODIPINE BESYLATE
     Indication: Product used for unknown indication
     Dates: start: 20210615
  66. FLUTICASONE FUROATE\UMECLIDINIUM BROMIDE\VILANTEROL TRIFENATATE [Concomitant]
     Active Substance: FLUTICASONE FUROATE\UMECLIDINIUM BROMIDE\VILANTEROL TRIFENATATE
     Indication: Product used for unknown indication
     Dates: start: 20210615

REACTIONS (2)
  - Myocardial infarction [Recovered/Resolved]
  - Acute respiratory failure [Recovered/Resolved]

NARRATIVE: CASE EVENT DATE: 20221208
